FAERS Safety Report 8517910-6 (Version None)
Quarter: 2012Q3

REPORT INFORMATION
  Report Type: 
  Country: None (occurrence: None)
  Receive Date: 20120718
  Receipt Date: 20110713
  Transmission Date: 20120928
  Serious: No
  Sender: FDA-Public Use
  Company Number: US-BRISTOL-MYERS SQUIBB COMPANY-15902463

PATIENT
  Age: 80 Year
  Sex: Female

DRUGS (1)
  1. COUMADIN [Suspect]
     Dosage: 5DAYS A WEEK.

REACTIONS (3)
  - HYPOTENSION [None]
  - OSTEOPOROSIS [None]
  - BODY HEIGHT DECREASED [None]
